FAERS Safety Report 19427618 (Version 1)
Quarter: 2021Q2

REPORT INFORMATION
  Report Type: Spontaneous
  Country: US (occurrence: US)
  Receive Date: 20210616
  Receipt Date: 20210616
  Transmission Date: 20210717
  Serious: No
  Sender: FDA-Public Use
  Company Number: US-ROCHE-2677010

PATIENT
  Sex: Female
  Weight: 101.15 kg

DRUGS (6)
  1. ACTEMRA [Suspect]
     Active Substance: TOCILIZUMAB
     Indication: RHEUMATOID ARTHRITIS
     Dosage: ONGOING
     Route: 042
     Dates: start: 201804
  2. ORENCIA [Concomitant]
     Active Substance: ABATACEPT
     Dates: start: 201204
  3. ENBREL [Concomitant]
     Active Substance: ETANERCEPT
  4. RITUXAN [Concomitant]
     Active Substance: RITUXIMAB
     Route: 042
     Dates: start: 2008
  5. CIMZIA [Concomitant]
     Active Substance: CERTOLIZUMAB PEGOL
  6. XELJANZ [Concomitant]
     Active Substance: TOFACITINIB CITRATE

REACTIONS (1)
  - Arthritis [Not Recovered/Not Resolved]
